FAERS Safety Report 5220575-2 (Version None)
Quarter: 2007Q1

REPORT INFORMATION
  Report Type: 
  Country: None (occurrence: None)
  Receive Date: 20070126
  Receipt Date: 20070116
  Transmission Date: 20070707
  Serious: Yes (Other)
  Sender: FDA-Public Use
  Company Number: PHBS2007BR01199

PATIENT
  Age: 6 Year
  Sex: Female
  Weight: 30 kg

DRUGS (3)
  1. TEGRETOL [Suspect]
     Indication: LEARNING DISABILITY
     Dosage: 5 ML/DAY
     Route: 048
     Dates: start: 20060801
  2. TEGRETOL [Suspect]
     Dosage: 6 ML/DAY
     Route: 048
     Dates: end: 20070114
  3. TEGRETOL [Suspect]
     Dosage: 3 ML/DAY
     Route: 048
     Dates: start: 20070115

REACTIONS (7)
  - ENURESIS [None]
  - ERYTHEMA [None]
  - PRURITUS [None]
  - RASH MACULAR [None]
  - RASH PAPULAR [None]
  - SKIN SWELLING [None]
  - URINARY RETENTION [None]
